FAERS Safety Report 7420429-7 (Version None)
Quarter: 2011Q2

REPORT INFORMATION
  Report Type: 
  Country: None (occurrence: None)
  Receive Date: 20110418
  Receipt Date: 20110412
  Transmission Date: 20111010
  Serious: No
  Sender: FDA-Public Use
  Company Number: US-PFIZER INC-2011080764

PATIENT
  Sex: Female
  Weight: 77 kg

DRUGS (4)
  1. PREMARIN [Suspect]
     Indication: HORMONE REPLACEMENT THERAPY
     Dosage: 2.5 MG, DAILY
     Route: 048
     Dates: start: 19850101
  2. LOTREL [Concomitant]
     Dosage: UNK
  3. SINEQUAN [Concomitant]
     Dosage: UNK
  4. ATARAX [Concomitant]
     Dosage: UNK

REACTIONS (1)
  - ABDOMINAL DISCOMFORT [None]
